FAERS Safety Report 10442745 (Version 1)
Quarter: 2014Q3

REPORT INFORMATION
  Report Type: Spontaneous
  Country: CN (occurrence: None)
  Receive Date: 20140908
  Receipt Date: 20140908
  Transmission Date: 20150326
  Serious: Yes (Hospitalization)
  Sender: FDA-Public Use
  Company Number: VAL_03355_2014

PATIENT
  Age: 65 Year
  Sex: Female

DRUGS (1)
  1. ROCALTROL [Suspect]
     Active Substance: CALCITRIOL
     Indication: BLOOD CALCIUM DECREASED
     Dosage: (DOSE WAS MORE OR LESS 4 TO 10 DF ORAL)

REACTIONS (4)
  - Memory impairment [None]
  - Blood parathyroid hormone increased [None]
  - Vascular injury [None]
  - Overdose [None]
